FAERS Safety Report 7648296-7 (Version None)
Quarter: 2011Q3

REPORT INFORMATION
  Report Type: 
  Country: None (occurrence: None)
  Receive Date: 20110801
  Receipt Date: 20110727
  Transmission Date: 20111222
  Serious: Yes (Other)
  Sender: FDA-Public Use
  Company Number: US-PFIZER INC-2011171573

PATIENT
  Sex: Male

DRUGS (1)
  1. LYRICA [Suspect]
     Dosage: 100 MG, 2X/DAY
     Route: 048
     Dates: start: 20100101

REACTIONS (4)
  - FACE OEDEMA [None]
  - VISUAL ACUITY REDUCED [None]
  - INTRAOCULAR PRESSURE INCREASED [None]
  - VISION BLURRED [None]
